FAERS Safety Report 4680109-8 (Version None)
Quarter: 2005Q2

REPORT INFORMATION
  Report Type: 
  Country: None (occurrence: None)
  Receive Date: 20050531
  Receipt Date: 20050518
  Transmission Date: 20051028
  Serious: Yes (Death)
  Sender: FDA-Public Use
  Company Number: 2005077514

PATIENT
  Age: 29 Year
  Sex: Male

DRUGS (2)
  1. HALCION [Suspect]
     Indication: ILL-DEFINED DISORDER
     Dosage: ORAL
     Route: 048
  2. VERAPAMIL HYDROCHLORIDE [Concomitant]

REACTIONS (1)
  - MURDER [None]
